FAERS Safety Report 4646908-3 (Version None)
Quarter: 2005Q2

REPORT INFORMATION
  Report Type: 
  Country: None (occurrence: None)
  Receive Date: 20050427
  Receipt Date: 20041215
  Transmission Date: 20051028
  Serious: No
  Sender: FDA-Public Use
  Company Number: DE-MERCK-0412DEU00142

PATIENT
  Age: 61 Year
  Sex: Male

DRUGS (3)
  1. VIOXX [Suspect]
     Indication: BONE DISORDER
     Route: 048
     Dates: start: 20030101, end: 20040812
  2. BISOPROLOL FUMARATE AND HYDROCHLOROTHIAZIDE [Concomitant]
     Indication: HYPERTENSION
     Route: 048
     Dates: start: 20040213, end: 20040921
  3. AMLODIPINE BESYLATE [Concomitant]
     Route: 048
     Dates: start: 20040213

REACTIONS (2)
  - ASTHENIA [None]
  - PERIPHERAL PARALYSIS [None]
